FAERS Safety Report 8977891 (Version 1)
Quarter: 2012Q4

REPORT INFORMATION
  Report Type: 
  Country: US (occurrence: US)
  Receive Date: 20121219
  Receipt Date: 20121219
  Transmission Date: 20130627
  Serious: Yes (Disabling)
  Sender: FDA-Public Use
  Company Number: US-GILEAD-2012-0062783

PATIENT

DRUGS (11)
  1. LETAIRIS [Suspect]
     Indication: CARDIAC FAILURE CONGESTIVE
     Dosage: 5 mg,QD
     Route: 048
     Dates: start: 20120810
  2. LETAIRIS [Suspect]
     Indication: PULMONARY HYPERTENSION
     Dosage: 2.5 mg, UNK
     Route: 048
     Dates: start: 201210
  3. LETAIRIS [Suspect]
     Indication: UNEVALUABLE EVENT
  4. ALLOPURINOL [Concomitant]
  5. HYDROCHLOROTHIAZIDE [Concomitant]
  6. CITALOPRAM [Concomitant]
  7. SIMVASTATIN [Concomitant]
  8. BENICAR [Concomitant]
  9. NORVASC [Concomitant]
  10. TOPROL [Concomitant]
  11. ASPIRIN [Concomitant]

REACTIONS (2)
  - Diarrhoea [Recovered/Resolved]
  - Unevaluable event [Unknown]
